FAERS Safety Report 13795194 (Version 1)
Quarter: 2017Q3

REPORT INFORMATION
  Report Type: Spontaneous
  Country: JP (occurrence: JP)
  Receive Date: 20170726
  Receipt Date: 20170726
  Transmission Date: 20171127
  Serious: Yes (Hospitalization)
  Sender: FDA-Public Use
  Company Number: PHHY2017JP106308

PATIENT
  Age: 37 Year
  Sex: Male
  Weight: 71.3 kg

DRUGS (10)
  1. CICLOSPORIN [Suspect]
     Active Substance: CYCLOSPORINE
     Indication: NEPHROTIC SYNDROME
     Dosage: 200 MG, QD
     Route: 065
  2. PREDNISOLONE. [Suspect]
     Active Substance: PREDNISOLONE
     Indication: GLOMERULONEPHRITIS MEMBRANOUS
     Dosage: 5 MG, QD
     Route: 065
  3. MIZORIBINE [Suspect]
     Active Substance: MIZORIBINE
     Indication: GLOMERULONEPHRITIS MEMBRANOUS
  4. RITUXIMAB. [Suspect]
     Active Substance: RITUXIMAB
     Indication: GLOMERULONEPHRITIS MEMBRANOUS
     Dosage: UNK
     Route: 065
  5. CICLOSPORIN [Suspect]
     Active Substance: CYCLOSPORINE
     Indication: GLOMERULONEPHRITIS MEMBRANOUS
  6. PREDNISOLONE. [Suspect]
     Active Substance: PREDNISOLONE
     Indication: NEPHROTIC SYNDROME
     Dosage: 60 MG, QD
     Route: 065
  7. MIZORIBINE [Suspect]
     Active Substance: MIZORIBINE
     Indication: NEPHROTIC SYNDROME
     Dosage: 150 MG, QD
     Route: 065
  8. RITUXIMAB. [Suspect]
     Active Substance: RITUXIMAB
     Dosage: 375 MG/M2, UNK (SINGLE DOSE)
     Route: 065
  9. MYCOPHENOLATE MOFETIL. [Suspect]
     Active Substance: MYCOPHENOLATE MOFETIL
     Indication: NEPHROTIC SYNDROME
     Dosage: 1000 MG, QD
     Route: 065
  10. MYCOPHENOLATE MOFETIL. [Suspect]
     Active Substance: MYCOPHENOLATE MOFETIL
     Indication: GLOMERULONEPHRITIS MEMBRANOUS
     Dosage: 1500 MG, QD
     Route: 065

REACTIONS (8)
  - Renal impairment [Unknown]
  - Proteinuria [Not Recovered/Not Resolved]
  - Nephrotic syndrome [Unknown]
  - Glomerulonephritis membranous [Unknown]
  - Therapy non-responder [Unknown]
  - Oedema peripheral [Unknown]
  - Hypoalbuminaemia [Not Recovered/Not Resolved]
  - End stage renal disease [Unknown]
